FAERS Safety Report 6891728-2 (Version None)
Quarter: 2010Q3

REPORT INFORMATION
  Report Type: 
  Country: None (occurrence: None)
  Receive Date: 20100731
  Receipt Date: 20070926
  Transmission Date: 20110219
  Serious: No
  Sender: FDA-Public Use
  Company Number: US-PFIZER INC-2007065636

PATIENT
  Sex: Male
  Weight: 110 kg

DRUGS (5)
  1. CAVERJECT [Suspect]
     Indication: ERECTILE DYSFUNCTION
     Dates: start: 20070101
  2. IMDUR [Concomitant]
  3. LASIX [Concomitant]
  4. VALSARTAN [Concomitant]
  5. ZEMPLAR [Concomitant]

REACTIONS (3)
  - DEVICE FAILURE [None]
  - ERECTILE DYSFUNCTION [None]
  - UNDERDOSE [None]
